FAERS Safety Report 12678306 (Version 1)
Quarter: 2016Q3

REPORT INFORMATION
  Report Type: Spontaneous
  Country: FR (occurrence: FR)
  Receive Date: 20160823
  Receipt Date: 20160823
  Transmission Date: 20161109
  Serious: Yes (Death, Hospitalization, Other)
  Sender: FDA-Public Use
  Company Number: FR-MYLANLABS-2016M1034502

PATIENT

DRUGS (9)
  1. DICLOFENAC MYLAN 1 %, GEL [Suspect]
     Active Substance: DICLOFENAC SODIUM
     Indication: LOCALISED INFECTION
     Dosage: UNK UNK, BID
     Route: 003
     Dates: start: 20160504, end: 20160523
  2. LANTUS [Concomitant]
     Active Substance: INSULIN GLARGINE
     Indication: PRODUCT USED FOR UNKNOWN INDICATION
     Dosage: 20 IU, QD
     Route: 058
     Dates: start: 201512
  3. VOLTAREN [Suspect]
     Active Substance: DICLOFENAC SODIUM
     Indication: LOCALISED INFECTION
     Dosage: 50 MG, TID
     Route: 048
     Dates: start: 20160504, end: 20160523
  4. LASILIX                            /00032601/ [Concomitant]
     Active Substance: FUROSEMIDE
     Indication: PRODUCT USED FOR UNKNOWN INDICATION
     Dosage: 40 MG, QD
     Route: 048
     Dates: start: 201512
  5. ALDACTONE [Concomitant]
     Active Substance: SPIRONOLACTONE
     Indication: PRODUCT USED FOR UNKNOWN INDICATION
     Dosage: 25 MG, QD
     Route: 048
     Dates: start: 201512, end: 20160525
  6. KARDEGIC [Concomitant]
     Active Substance: ASPIRIN LYSINE
     Indication: PRODUCT USED FOR UNKNOWN INDICATION
     Dosage: 75 MG, QD
     Route: 048
     Dates: start: 201512
  7. OGASTORO [Concomitant]
     Active Substance: LANSOPRAZOLE
     Indication: PRODUCT USED FOR UNKNOWN INDICATION
     Dosage: 30 MG, QD
     Route: 048
     Dates: start: 201512, end: 20160529
  8. NOVONORM [Concomitant]
     Active Substance: REPAGLINIDE
     Indication: PRODUCT USED FOR UNKNOWN INDICATION
     Dosage: 2 MG, TID
     Route: 048
     Dates: start: 20151207, end: 20160525
  9. AMOXICILLINE                       /00249602/ [Concomitant]
     Active Substance: AMOXICILLIN
     Indication: PRODUCT USED FOR UNKNOWN INDICATION
     Dosage: 1 G, TID
     Route: 048
     Dates: start: 20160504, end: 20160523

REACTIONS (7)
  - Cachexia [Unknown]
  - Infection [Fatal]
  - Bradycardia [Unknown]
  - Localised infection [Fatal]
  - Erysipelas [Unknown]
  - Brain natriuretic peptide increased [Unknown]
  - General physical health deterioration [Unknown]

NARRATIVE: CASE EVENT DATE: 20160523
